FAERS Safety Report 9802936 (Version 1)
Quarter: 2014Q1

REPORT INFORMATION
  Report Type: Spontaneous
  Country: US (occurrence: US)
  Receive Date: 20140108
  Receipt Date: 20140108
  Transmission Date: 20141002
  Serious: No
  Sender: FDA-Public Use
  Company Number: US-BAYER-2014-002713

PATIENT
  Age: 53 Year
  Sex: Female

DRUGS (2)
  1. CLIMARA PRO [Suspect]
     Dosage: UNK
     Dates: start: 201312
  2. CLIMARA PRO [Suspect]
     Dosage: UNK

REACTIONS (2)
  - Inappropriate schedule of drug administration [None]
  - Product adhesion issue [None]
